FAERS Safety Report 12473464 (Version 3)
Quarter: 2016Q3

REPORT INFORMATION
  Report Type: Spontaneous
  Country: US (occurrence: US)
  Receive Date: 20160616
  Receipt Date: 20160825
  Transmission Date: 20161109
  Serious: Yes (Other)
  Sender: FDA-Public Use
  Company Number: US-GLAXOSMITHKLINE-US2016085938

PATIENT
  Sex: Female

DRUGS (1)
  1. FLOVENT DISKUS [Suspect]
     Active Substance: FLUTICASONE PROPIONATE
     Indication: PRODUCT USED FOR UNKNOWN INDICATION
     Dosage: UNK UNK, U
     Route: 055
     Dates: start: 1997

REACTIONS (7)
  - Hip fracture [Unknown]
  - Fall [Unknown]
  - Device use error [Unknown]
  - Drug dose omission [Unknown]
  - Multiple allergies [Unknown]
  - Device defective [Unknown]
  - Spinal fusion surgery [Unknown]
